FAERS Safety Report 25186504 (Version 1)
Quarter: 2025Q2

REPORT INFORMATION
  Report Type: Spontaneous
  Country: US (occurrence: US)
  Receive Date: 20250411
  Receipt Date: 20250411
  Transmission Date: 20250717
  Serious: Yes (Death, Other)
  Sender: PROCTER AND GAMBLE
  Company Number: US-PROCTER+GAMBLE-PH25002665

PATIENT
  Age: 35 Year
  Sex: Male

DRUGS (12)
  1. DIPHENHYDRAMINE HYDROCHLORIDE [Suspect]
     Active Substance: DIPHENHYDRAMINE HYDROCHLORIDE
  2. KETAMINE [Suspect]
     Active Substance: KETAMINE
  3. NORKETAMINE [Suspect]
     Active Substance: NORKETAMINE
  4. MIDOMAFETAMINE [Suspect]
     Active Substance: MIDOMAFETAMINE
  5. TENAMFETAMINE [Suspect]
     Active Substance: TENAMFETAMINE
  6. COCAINE [Suspect]
     Active Substance: COCAINE
  7. ALCOHOL [Suspect]
     Active Substance: ALCOHOL
  8. BUPROPION [Suspect]
     Active Substance: BUPROPION
  9. ESCITALOPRAM [Suspect]
     Active Substance: ESCITALOPRAM OXALATE
  10. CITALOPRAM [Suspect]
     Active Substance: CITALOPRAM
  11. HERBALS\TETRAHYDROCANNABINOL UNSPECIFIED [Suspect]
     Active Substance: HERBALS\TETRAHYDROCANNABINOL UNSPECIFIED
  12. TADALAFIL [Suspect]
     Active Substance: TADALAFIL

REACTIONS (6)
  - Toxicity to various agents [Fatal]
  - Completed suicide [Fatal]
  - Drug abuse [Fatal]
  - Hanging [Fatal]
  - Abnormal behaviour [Fatal]
  - Postmortem blood drug level abnormal [Fatal]
